FAERS Safety Report 7481342-2 (Version None)
Quarter: 2011Q2

REPORT INFORMATION
  Report Type: 
  Country: None (occurrence: None)
  Receive Date: 20110516
  Receipt Date: 20110509
  Transmission Date: 20111010
  Serious: Yes (Death, Hospitalization)
  Sender: FDA-Public Use
  Company Number: IT-TEVA-281175ISR

PATIENT
  Age: 73 Year
  Sex: Male

DRUGS (6)
  1. RITUXIMAB [Suspect]
     Dates: end: 20070301
  2. MESNA [Suspect]
     Dates: end: 20070301
  3. ETOPOSIDE [Suspect]
     Dates: end: 20070301
  4. MITOXANTRONE [Suspect]
     Dates: end: 20070301
  5. LAMIVUDINE [Concomitant]
  6. IFOSFAMIDE [Suspect]
     Dates: end: 20070301

REACTIONS (2)
  - HEPATIC FAILURE [None]
  - HEPATITIS B [None]
